FAERS Safety Report 9644682 (Version 1)
Quarter: 2013Q4

REPORT INFORMATION
  Report Type: Spontaneous
  Country: US (occurrence: US)
  Receive Date: 20131025
  Receipt Date: 20131025
  Transmission Date: 20140711
  Serious: Yes (Hospitalization)
  Sender: FDA-Public Use
  Company Number: US-BAYER-2013-128045

PATIENT
  Age: 21 Year
  Sex: Female
  Weight: 68.03 kg

DRUGS (10)
  1. YASMIN [Suspect]
  2. YAZ [Suspect]
  3. CEPHALEXIN [Concomitant]
     Indication: EAR INFECTION
     Dosage: 500 MG, BID
     Dates: start: 20090526
  4. PANADOL [Concomitant]
     Indication: PAIN
  5. NUROFEN [Concomitant]
     Indication: PAIN
  6. MORPHINE [Concomitant]
     Indication: PAIN
  7. GENTAMICIN [Concomitant]
  8. KEFLIN [Concomitant]
  9. PARACETAMOL [Concomitant]
  10. CANESTEN [Concomitant]

REACTIONS (3)
  - Pulmonary embolism [Recovered/Resolved]
  - Deep vein thrombosis [Recovered/Resolved]
  - Pelvic venous thrombosis [Recovered/Resolved]
